FAERS Safety Report 10427199 (Version 1)
Quarter: 2014Q3

REPORT INFORMATION
  Report Type: Spontaneous
  Country: US (occurrence: None)
  Receive Date: 20140725
  Receipt Date: 20140725
  Transmission Date: 20150326
  Serious: No
  Sender: FDA-Public Use
  Company Number: AP356-00836-SPO-US

PATIENT
  Age: 56 Year
  Sex: Male
  Weight: 108.6 kg

DRUGS (9)
  1. ZETIA [Concomitant]
     Active Substance: EZETIMIBE
  2. ALLOPURINOL. [Concomitant]
     Active Substance: ALLOPURINOL
  3. WARFARIN [Concomitant]
     Active Substance: WARFARIN
  4. PRAVACHOL (PRAVASTATIN SODIUM) [Concomitant]
  5. COLCHICINE. [Concomitant]
     Active Substance: COLCHICINE
  6. BELVIQ [Suspect]
     Active Substance: LORCASERIN HYDROCHLORIDE
     Indication: WEIGHT DECREASED
     Route: 048
     Dates: start: 201405
  7. DIOVAN [Concomitant]
     Active Substance: VALSARTAN
  8. LASIX [Concomitant]
     Active Substance: FUROSEMIDE
  9. COREG [Concomitant]
     Active Substance: CARVEDILOL

REACTIONS (1)
  - Blood creatinine increased [None]

NARRATIVE: CASE EVENT DATE: 20140530
